FAERS Safety Report 6175410-5 (Version None)
Quarter: 2009Q2

REPORT INFORMATION
  Report Type: 
  Country: None (occurrence: None)
  Receive Date: 20090430
  Receipt Date: 20090420
  Transmission Date: 20091009
  Serious: Yes (Hospitalization)
  Sender: FDA-Public Use
  Company Number: JP-GILEAD-E2B_00000331

PATIENT
  Age: 70 Year
  Sex: Female

DRUGS (2)
  1. HEPSERA [Suspect]
     Route: 048
  2. LAMIVUDINE [Suspect]
     Route: 048

REACTIONS (8)
  - AMINOACIDURIA [None]
  - BETA-N-ACETYL-D-GLUCOSAMINIDASE INCREASED [None]
  - BLOOD ALKALINE PHOSPHATASE INCREASED [None]
  - FANCONI SYNDROME ACQUIRED [None]
  - HYPOPHOSPHATAEMIA [None]
  - METABOLIC ACIDOSIS [None]
  - RENAL GLYCOSURIA [None]
  - URINE PHOSPHATE INCREASED [None]
